FAERS Safety Report 4844249-2 (Version None)
Quarter: 2005Q4

REPORT INFORMATION
  Report Type: 
  Country: None (occurrence: None)
  Receive Date: 20051202
  Receipt Date: 20051118
  Transmission Date: 20060501
  Serious: Yes (Other)
  Sender: FDA-Public Use
  Company Number: GBWYE155821NOV05

PATIENT
  Sex: Female

DRUGS (4)
  1. ENBREL [Suspect]
     Indication: RHEUMATOID ARTHRITIS
     Route: 058
     Dates: start: 20040101
  2. SULFASALAZINE [Concomitant]
     Dosage: UNKNOWN
     Route: 065
  3. OXPRENOLOL [Concomitant]
     Dosage: UNKNOWN
     Route: 065
  4. PREDNISOLONE [Concomitant]
     Dosage: SMALL DOSE
     Route: 065

REACTIONS (2)
  - ANGINA PECTORIS [None]
  - CORONARY ARTERY DISEASE [None]
